FAERS Safety Report 8020427 (Version 2)
Quarter: 2013Q4

REPORT INFORMATION
  Report Type: Spontaneous
  Country: CZ (occurrence: CZ)
  Receive Date: 20110705
  Receipt Date: 20131022
  Transmission Date: 20140711
  Serious: Yes (Hospitalization)
  Sender: FDA-Public Use
  Company Number: CZ-RANBAXY-2011R1-45629

PATIENT
  Age: 46 Year
  Sex: Male

DRUGS (8)
  1. PREDNISONE [Suspect]
     Indication: PRODUCT USED FOR UNKNOWN INDICATION
     Dosage: UNK
     Route: 065
  2. HYDROCORTISONE [Suspect]
     Indication: PRODUCT USED FOR UNKNOWN INDICATION
     Dosage: 20 MG/DAY
     Route: 048
  3. HYDROCORTISONE [Suspect]
     Indication: URTICARIA CHRONIC
     Dosage: UNK
     Route: 065
  4. HYDROCORTISONE [Suspect]
     Indication: PRODUCT USED FOR UNKNOWN INDICATION
     Dosage: 60 MG/ DAY
     Route: 048
  5. HYDROCORTISONE [Suspect]
     Dosage: 30 MG/ DAY
     Route: 048
  6. METHYLPREDNISOLONE [Suspect]
     Indication: PRODUCT USED FOR UNKNOWN INDICATION
     Dosage: 16 MG, TID
     Route: 048
  7. BRUFEN [Concomitant]
     Indication: ANALGESIC THERAPY
     Dosage: UNK
     Route: 065
  8. ALGIFEN [Concomitant]
     Indication: PRODUCT USED FOR UNKNOWN INDICATION
     Dosage: UNK
     Route: 065

REACTIONS (1)
  - Cushing^s syndrome [Unknown]
